FAERS Safety Report 7460171-X (Version None)
Quarter: 2011Q2

REPORT INFORMATION
  Report Type: 
  Country: None (occurrence: None)
  Receive Date: 20110505
  Receipt Date: 20110429
  Transmission Date: 20111010
  Serious: Yes (Other)
  Sender: FDA-Public Use
  Company Number: BR-ROCHE-749741

PATIENT
  Age: 53 Year
  Sex: Male

DRUGS (3)
  1. RIVOTRIL [Suspect]
     Dosage: DOSE REDUCED . DISCONTINUED ON 2011
     Route: 048
  2. CLONAZEPAM [Suspect]
     Indication: DEPRESSION
     Dosage: START DATE: 2011
     Route: 065
  3. RIVOTRIL [Suspect]
     Indication: DEPRESSION
     Route: 048
     Dates: start: 19950101

REACTIONS (14)
  - DEPRESSED MOOD [None]
  - IMPAIRED DRIVING ABILITY [None]
  - FEAR [None]
  - INSOMNIA [None]
  - WEIGHT DECREASED [None]
  - HOMICIDAL IDEATION [None]
  - WITHDRAWAL SYNDROME [None]
  - SUICIDAL IDEATION [None]
  - LACK OF SPONTANEOUS SPEECH [None]
  - TACHYCARDIA [None]
  - DEPRESSION [None]
  - EMOTIONAL POVERTY [None]
  - MEMORY IMPAIRMENT [None]
  - ACTIVITIES OF DAILY LIVING IMPAIRED [None]
